FAERS Safety Report 26162335 (Version 1)
Quarter: 2025Q4

REPORT INFORMATION
  Report Type: Spontaneous
  Country: CN (occurrence: CN)
  Receive Date: 20251216
  Receipt Date: 20251216
  Transmission Date: 20260117
  Serious: Yes (Other)
  Sender: MELINTA THERAPEUTICS
  Company Number: CN-ASTRAZENECA-202512CHN001940CN

PATIENT

DRUGS (4)
  1. METOPROLOL SUCCINATE [Suspect]
     Active Substance: METOPROLOL SUCCINATE
     Indication: Product used for unknown indication
     Dosage: 23.750000 MILLIGRAM,1 TIMES 1 DAY
     Route: 048
     Dates: start: 20251015, end: 20251029
  2. ROSUVASTATIN [Suspect]
     Active Substance: ROSUVASTATIN
     Dosage: 10.000000 MILLIGRAM,1 TIMES 1 DAY
     Route: 048
     Dates: start: 20251015, end: 20251029
  3. CEFOPERAZONE SODIUM\SULBACTAM SODIUM [Suspect]
     Active Substance: CEFOPERAZONE SODIUM\SULBACTAM SODIUM
     Dosage: 3.000000 GRAM,2 TIMES 1 DAY
     Route: 065
     Dates: start: 20251021, end: 20251028
  4. LEVOFLOXACIN HYDROCHLORIDE [Suspect]
     Active Substance: LEVOFLOXACIN HYDROCHLORIDE
     Dosage: 0.400000 GRAM,1 TIMES 1 DAY
     Route: 065
     Dates: start: 20251027, end: 20251028

REACTIONS (1)
  - Liver injury [Unknown]

NARRATIVE: CASE EVENT DATE: 20251028
